FAERS Safety Report 7703686-9 (Version None)
Quarter: 2011Q3

REPORT INFORMATION
  Report Type: 
  Country: None (occurrence: None)
  Receive Date: 20110823
  Receipt Date: 20110816
  Transmission Date: 20111222
  Serious: Yes (Other)
  Sender: FDA-Public Use
  Company Number: US-JNJFOC-20110804506

PATIENT
  Sex: Male

DRUGS (1)
  1. ULTRAM SR [Suspect]
     Indication: ARTHRALGIA
     Route: 048
     Dates: start: 20110701

REACTIONS (4)
  - INTENTIONAL DRUG MISUSE [None]
  - DELUSION [None]
  - AGGRESSION [None]
  - HALLUCINATION, VISUAL [None]
